FAERS Safety Report 17130820 (Version 1)
Quarter: 2019Q4

REPORT INFORMATION
  Report Type: Spontaneous
  Country: FR (occurrence: FR)
  Receive Date: 20191209
  Receipt Date: 20191209
  Transmission Date: 20200122
  Serious: Yes (Other)
  Sender: FDA-Public Use
  Company Number: FR-ELI_LILLY_AND_COMPANY-FR201912003378

PATIENT
  Age: 70 Year
  Sex: Female
  Weight: 56 kg

DRUGS (3)
  1. ERBITUX [Suspect]
     Active Substance: CETUXIMAB
     Indication: ADENOCARCINOMA OF COLON
     Dosage: 500 MG/M2, EVERY TWO WEEKS
     Route: 042
     Dates: start: 20190221
  2. FLUOROURACILE ACCORD [Suspect]
     Active Substance: FLUOROURACIL
     Indication: ADENOCARCINOMA OF COLON
     Dosage: 1600 MG/M2, EVERY TWO WEEKS
     Route: 042
     Dates: start: 20190221
  3. IRINOTECAN HOSPIRA [Suspect]
     Active Substance: IRINOTECAN
     Indication: ADENOCARCINOMA OF COLON
     Dosage: 150 MG/M2, EVERY TWO WEEKS
     Route: 042
     Dates: start: 20190221, end: 20190515

REACTIONS (1)
  - Palmar-plantar erythrodysaesthesia syndrome [Recovered/Resolved]

NARRATIVE: CASE EVENT DATE: 20190404
